FAERS Safety Report 7599756-9 (Version None)
Quarter: 2011Q2

REPORT INFORMATION
  Report Type: 
  Country: None (occurrence: None)
  Receive Date: 20110620
  Receipt Date: 20110329
  Transmission Date: 20111010
  Serious: Yes (Hospitalization)
  Sender: FDA-Public Use
  Company Number: UTC-005994

PATIENT
  Age: 64 Year
  Sex: Female
  Weight: 71.81 kg

DRUGS (1)
  1. TYVASO [Suspect]
     Dosage: 288 MCG (72 MCG, 4 IN 1 D), INHALATION
     Route: 055
     Dates: start: 20091020

REACTIONS (2)
  - DIZZINESS [None]
  - SYNCOPE [None]
